FAERS Safety Report 25025171 (Version 1)
Quarter: 2025Q1

REPORT INFORMATION
  Report Type: Spontaneous
  Country: US (occurrence: US)
  Receive Date: 20250228
  Receipt Date: 20250228
  Transmission Date: 20250408
  Serious: No
  Sender: PFIZER
  Company Number: US-PFIZER INC-PV202500023564

PATIENT
  Age: 61 Year
  Sex: Female

DRUGS (15)
  1. ENBREL [Suspect]
     Active Substance: ETANERCEPT
  2. XELJANZ [Suspect]
     Active Substance: TOFACITINIB CITRATE
  3. HUMIRA [Suspect]
     Active Substance: ADALIMUMAB
  4. ORENCIA [Suspect]
     Active Substance: ABATACEPT
  5. KEVZARA [Suspect]
     Active Substance: SARILUMAB
  6. RINVOQ [Suspect]
     Active Substance: UPADACITINIB
  7. PREDNISONE [Concomitant]
     Active Substance: PREDNISONE
  8. ACTEMRA [Concomitant]
     Active Substance: TOCILIZUMAB
  9. NAPROXEN [Concomitant]
     Active Substance: NAPROXEN
  10. AMOXICILLIN [Concomitant]
     Active Substance: AMOXICILLIN
  11. ACETAMINOPHEN [Concomitant]
     Active Substance: ACETAMINOPHEN
  12. DUEXIS [Concomitant]
     Active Substance: FAMOTIDINE\IBUPROFEN
  13. RAYOS [Concomitant]
     Active Substance: PREDNISONE
  14. COLCHICINE [Concomitant]
     Active Substance: COLCHICINE
  15. SULFASALAZINE [Concomitant]
     Active Substance: SULFASALAZINE

REACTIONS (1)
  - Drug ineffective [Unknown]
